FAERS Safety Report 17983208 (Version 1)
Quarter: 2020Q3

REPORT INFORMATION
  Report Type: Spontaneous
  Country: US (occurrence: US)
  Receive Date: 20200703
  Receipt Date: 20200703
  Transmission Date: 20201103
  Serious: Yes (Death)
  Sender: FDA-Public Use
  Company Number: None

PATIENT
  Age: 5 Month
  Sex: Male
  Weight: 85.5 kg

DRUGS (1)
  1. VIIBRYD [Suspect]
     Active Substance: VILAZODONE HYDROCHLORIDE
     Indication: PRODUCT USED FOR UNKNOWN INDICATION
     Dosage: ?          QUANTITY:14 TABLET(S);?
     Route: 048
     Dates: start: 20200620, end: 20200627

REACTIONS (7)
  - Balance disorder [None]
  - Abdominal pain upper [None]
  - Confusional state [None]
  - Headache [None]
  - Dysarthria [None]
  - Abnormal behaviour [None]
  - Completed suicide [None]

NARRATIVE: CASE EVENT DATE: 20200628
